FAERS Safety Report 4445678-1 (Version None)
Quarter: 2004Q3

REPORT INFORMATION
  Report Type: 
  Country: None (occurrence: None)
  Receive Date: 20040910
  Receipt Date: 20020311
  Transmission Date: 20050211
  Serious: Yes (Death, Hospitalization)
  Sender: FDA-Public Use
  Company Number: 200212523US

PATIENT
  Sex: Female

DRUGS (10)
  1. ARAVA [Suspect]
     Indication: RHEUMATOID ARTHRITIS
     Route: 048
     Dates: start: 20011004, end: 20020123
  2. METHOTREXATE [Concomitant]
     Dosage: DOSE: UNK
     Dates: end: 20010921
  3. PLAQUENIL [Concomitant]
     Dosage: DOSE: UNK
  4. TYLENOL [Concomitant]
     Indication: ARTHRALGIA
  5. FOSAMAX [Concomitant]
  6. CALTRATE + D [Concomitant]
  7. BENADRYL [Concomitant]
  8. ZYBAN [Concomitant]
     Indication: SMOKING CESSATION THERAPY
  9. PREDNISONE [Concomitant]
  10. VOLTAREN-XR [Concomitant]
     Indication: ARTHRITIS
     Dosage: DOSE: NOT PROVIDED

REACTIONS (15)
  - ABDOMINAL PAIN LOWER [None]
  - ABDOMINAL PAIN UPPER [None]
  - ACUTE MYELOID LEUKAEMIA [None]
  - ANOREXIA [None]
  - CONSTIPATION [None]
  - FAECAL VOLUME INCREASED [None]
  - HEADACHE [None]
  - HYPONATRAEMIA [None]
  - MENTAL STATUS CHANGES [None]
  - MUSCLE CRAMP [None]
  - NAUSEA [None]
  - PANCYTOPENIA [None]
  - RESPIRATORY DISTRESS [None]
  - RESUSCITATION [None]
  - SEPSIS [None]
